FAERS Safety Report 9869194 (Version 1)
Quarter: 2014Q1

REPORT INFORMATION
  Report Type: Spontaneous
  Country: GR (occurrence: GR)
  Receive Date: 20140205
  Receipt Date: 20140205
  Transmission Date: 20141002
  Serious: Yes (Other)
  Sender: FDA-Public Use
  Company Number: GR-ORION CORPORATION ORION PHARMA-ENTC2014-0036

PATIENT
  Age: 64 Year
  Sex: Male

DRUGS (2)
  1. STALEVO [Suspect]
     Route: 065
  2. MIRAPEXIN [Concomitant]
     Route: 065

REACTIONS (1)
  - Bladder cancer [Recovered/Resolved]
